FAERS Safety Report 21188031 (Version 1)
Quarter: 2022Q3

REPORT INFORMATION
  Report Type: Spontaneous
  Country: HU (occurrence: HU)
  Receive Date: 20220809
  Receipt Date: 20220809
  Transmission Date: 20221026
  Serious: Yes (Other)
  Sender: FDA-Public Use
  Company Number: HU-SUN PHARMACEUTICAL INDUSTRIES LTD-2022R1-347739

PATIENT
  Age: 70 Year
  Sex: Male

DRUGS (1)
  1. METFORMIN [Suspect]
     Active Substance: METFORMIN HYDROCHLORIDE
     Indication: Product used for unknown indication
     Dosage: 3 X 500 MILLIGRAM, DAILY
     Route: 065
     Dates: start: 201705

REACTIONS (2)
  - Therapy partial responder [Unknown]
  - Disease progression [Unknown]

NARRATIVE: CASE EVENT DATE: 20180101
